FAERS Safety Report 14832325 (Version 2)
Quarter: 2019Q1

REPORT INFORMATION
  Report Type: Spontaneous
  Country: US (occurrence: US)
  Receive Date: 20180501
  Receipt Date: 20190327
  Transmission Date: 20190417
  Serious: No
  Sender: FDA-Public Use
  Company Number: US-MYLANLABS-2018M1024263

PATIENT
  Sex: Female
  Weight: 82 kg

DRUGS (2)
  1. FENTANYL TRANSDERMAL SYSTEM [Suspect]
     Active Substance: FENTANYL
     Indication: FLANK PAIN
     Dosage: UNK
     Route: 062
  2. FENTANYL TRANSDERMAL SYSTEM [Suspect]
     Active Substance: FENTANYL
     Indication: CHRONIC KIDNEY DISEASE

REACTIONS (4)
  - Wrong technique in product usage process [Unknown]
  - Incorrect disposal of product [Unknown]
  - No adverse event [Unknown]
  - Product adhesion issue [Unknown]
